FAERS Safety Report 4440595-5 (Version None)
Quarter: 2004Q3

REPORT INFORMATION
  Report Type: 
  Country: None (occurrence: None)
  Receive Date: 20040728
  Receipt Date: 20040323
  Transmission Date: 20050211
  Serious: No
  Sender: FDA-Public Use
  Company Number: USA031255526

PATIENT
  Age: 51 Year
  Sex: Male
  Weight: 66 kg

DRUGS (1)
  1. STRATTERA [Suspect]
     Indication: ATTENTION DEFICIT/HYPERACTIVITY DISORDER
     Dosage: 60 MG/DAY
     Dates: start: 20031210, end: 20040301

REACTIONS (4)
  - DISCOMFORT [None]
  - DYSURIA [None]
  - MALE ORGASMIC DISORDER [None]
  - PREMATURE EJACULATION [None]
